FAERS Safety Report 7824591-3 (Version None)
Quarter: 2011Q4

REPORT INFORMATION
  Report Type: 
  Country: None (occurrence: None)
  Receive Date: 20111019
  Receipt Date: 20111007
  Transmission Date: 20120403
  Serious: No
  Sender: FDA-Public Use
  Company Number: US-ELI_LILLY_AND_COMPANY-US201110002220

PATIENT
  Sex: Female

DRUGS (4)
  1. MECLIZINE [Concomitant]
  2. LEVOTHYROXINE SODIUM [Concomitant]
  3. LISINOPRIL [Concomitant]
  4. ZYPREXA [Suspect]
     Dosage: 2.5 MG, UNK
     Dates: start: 20110101

REACTIONS (4)
  - WHITE BLOOD CELL COUNT DECREASED [None]
  - FATIGUE [None]
  - DRY MOUTH [None]
  - IRRITABILITY [None]
